FAERS Safety Report 14824076 (Version 2)
Quarter: 2019Q1

REPORT INFORMATION
  Report Type: Report from Study
  Country: DE (occurrence: DE)
  Receive Date: 20180428
  Receipt Date: 20190214
  Transmission Date: 20190417
  Serious: Yes (Hospitalization)
  Sender: FDA-Public Use
  Company Number: DE-ROCHE-2115395

PATIENT
  Age: 57 Year
  Sex: Male

DRUGS (10)
  1. NOVOPULMON [Concomitant]
     Active Substance: BUDESONIDE
  2. LANTAREL [Concomitant]
     Active Substance: METHOTREXATE SODIUM
  3. LODOTRA [Concomitant]
     Active Substance: PREDNISONE
  4. SALBUTAMOL [Concomitant]
     Active Substance: ALBUTEROL
  5. FOLINIC ACID [Concomitant]
     Active Substance: LEUCOVORIN
  6. OMEPRAZOL [Concomitant]
     Active Substance: OMEPRAZOLE
  7. FORMATRIS [Concomitant]
     Active Substance: FORMOTEROL FUMARATE
  8. METHOTREXATE. [Suspect]
     Active Substance: METHOTREXATE
     Indication: RHEUMATOID ARTHRITIS
     Route: 065
  9. RITUXIMAB. [Suspect]
     Active Substance: RITUXIMAB
     Indication: RHEUMATOID ARTHRITIS
     Route: 065
     Dates: start: 20180125
  10. IBUFLAM (GERMANY) [Concomitant]

REACTIONS (1)
  - Complicated appendicitis [Recovered/Resolved]

NARRATIVE: CASE EVENT DATE: 20180411
